FAERS Safety Report 7525217-9 (Version None)
Quarter: 2011Q2

REPORT INFORMATION
  Report Type: 
  Country: None (occurrence: None)
  Receive Date: 20110602
  Receipt Date: 20110602
  Transmission Date: 20111010
  Serious: Yes (Life-Threatening)
  Sender: FDA-Public Use
  Company Number: None

PATIENT
  Sex: Female
  Weight: 75 kg

DRUGS (1)
  1. CEFDINIR [Suspect]
     Indication: UPPER RESPIRATORY TRACT INFECTION
     Dosage: 300 MG TWO TIMES PER DAY ORALLY
     Route: 048
     Dates: start: 20110513, end: 20110520

REACTIONS (3)
  - STEVENS-JOHNSON SYNDROME [None]
  - DIZZINESS [None]
  - DYSPHAGIA [None]
